FAERS Safety Report 8468857-5 (Version None)
Quarter: 2012Q2

REPORT INFORMATION
  Report Type: 
  Country: None (occurrence: None)
  Receive Date: 20120626
  Receipt Date: 20110218
  Transmission Date: 20120825
  Serious: Yes (Other)
  Sender: FDA-Public Use
  Company Number: BE-ROCHE-761277

PATIENT
  Age: 60 Year
  Sex: Male
  Weight: 60 kg

DRUGS (7)
  1. IRINOTECAN HCL [Suspect]
     Indication: COLORECTAL CANCER METASTATIC
     Route: 042
     Dates: start: 20100422, end: 20110217
  2. DURAGESIC-100 [Concomitant]
     Indication: BONE PAIN
     Dosage: DOSE: 50 UG/H
     Route: 062
  3. FLUOROURACIL [Concomitant]
     Indication: COLORECTAL CANCER METASTATIC
     Dates: start: 20100422, end: 20110217
  4. LEUCOVORIN CALCIUM [Concomitant]
     Indication: COLORECTAL CANCER METASTATIC
     Dates: start: 20100422, end: 20110217
  5. ZOMETA [Suspect]
     Indication: METASTASES TO BONE
     Route: 042
     Dates: start: 20100422, end: 20100916
  6. AVASTIN [Suspect]
     Indication: COLORECTAL CANCER METASTATIC
     Route: 042
     Dates: start: 20100422, end: 20101230
  7. DEXPANTHENOL [Concomitant]
     Indication: PROPHYLAXIS
     Route: 048

REACTIONS (2)
  - DISEASE PROGRESSION [None]
  - OSTEONECROSIS OF JAW [None]
